FAERS Safety Report 6984945-4 (Version None)
Quarter: 2010Q3

REPORT INFORMATION
  Report Type: 
  Country: None (occurrence: None)
  Receive Date: 20100915
  Receipt Date: 20100902
  Transmission Date: 20110219
  Serious: Yes (Other)
  Sender: FDA-Public Use
  Company Number: SE-ELI_LILLY_AND_COMPANY-SE201009001865

PATIENT
  Age: 47 Year
  Sex: Male

DRUGS (6)
  1. ZYPREXA [Suspect]
     Dosage: 10 MG, DAILY (1/D)
     Route: 048
     Dates: start: 20100712
  2. CITALOPRAM HYDROBROMIDE [Concomitant]
     Dosage: UNK, UNKNOWN
     Route: 065
  3. TRILAFON [Concomitant]
     Dosage: UNK, UNKNOWN
     Route: 065
  4. BETNOVATE [Concomitant]
     Dosage: UNK, UNKNOWN
     Route: 065
  5. LITHIONIT [Concomitant]
     Dosage: UNK, UNKNOWN
     Route: 065
  6. TIMOSAN [Concomitant]
     Dosage: UNK, UNKNOWN
     Route: 065

REACTIONS (1)
  - VENOUS THROMBOSIS LIMB [None]
